FAERS Safety Report 8616070-0 (Version None)
Quarter: 2012Q3

REPORT INFORMATION
  Report Type: 
  Country: None (occurrence: None)
  Receive Date: 20120823
  Receipt Date: 20120815
  Transmission Date: 20120928
  Serious: Yes (Hospitalization, Other)
  Sender: FDA-Public Use
  Company Number: US-009507513-1206USA05077

PATIENT

DRUGS (4)
  1. CALCIUM (UNSPECIFIED) (+) VITAMIN D (UNSPECIFIED) [Concomitant]
     Dosage: 600 MG, BID
  2. FOSAMAX [Suspect]
     Indication: OSTEOPOROSIS
     Dosage: 70 MG, QW
     Route: 048
     Dates: start: 19960114
  3. FOSAMAX [Suspect]
     Indication: OSTEOPENIA
  4. VITAMINS (UNSPECIFIED) [Concomitant]
     Dosage: UNK, QD

REACTIONS (11)
  - TRANSFUSION [None]
  - FEMUR FRACTURE [None]
  - FALL [None]
  - FRACTURE DELAYED UNION [None]
  - OSTEOPOROSIS [None]
  - OPEN REDUCTION OF FRACTURE [None]
  - URTICARIA [None]
  - BONE DISORDER [None]
  - LOW TURNOVER OSTEOPATHY [None]
  - TRANSFUSION REACTION [None]
  - TEMPOROMANDIBULAR JOINT SYNDROME [None]
